FAERS Safety Report 19660812 (Version 1)
Quarter: 2021Q3

REPORT INFORMATION
  Report Type: Spontaneous
  Country: US (occurrence: US)
  Receive Date: 20210805
  Receipt Date: 20210805
  Transmission Date: 20211014
  Serious: Yes (Hospitalization, Other)
  Sender: FDA-Public Use
  Company Number: None

PATIENT
  Age: 30 Year
  Sex: Male
  Weight: 121.5 kg

DRUGS (17)
  1. HYDROXYZINE PAMOATE. [Concomitant]
     Active Substance: HYDROXYZINE PAMOATE
  2. TRAZODONE [Concomitant]
     Active Substance: TRAZODONE HYDROCHLORIDE
  3. PROPANALOL [Concomitant]
  4. PHENAZOPYRIDINE. [Concomitant]
     Active Substance: PHENAZOPYRIDINE
  5. PSYLLIUM [Concomitant]
     Active Substance: PLANTAGO SEED
  6. NICOTINE. [Concomitant]
     Active Substance: NICOTINE
  7. SUMATRIPTAN. [Concomitant]
     Active Substance: SUMATRIPTAN
  8. CHOLESTYRAMINE. [Concomitant]
     Active Substance: CHOLESTYRAMINE
  9. FENOFIBRATE. [Concomitant]
     Active Substance: FENOFIBRATE
  10. ARMODAFINIL. [Suspect]
     Active Substance: ARMODAFINIL
     Indication: DISTURBANCE IN ATTENTION
     Dosage: ?          QUANTITY:1.5 TABLET(S);?
     Route: 048
     Dates: start: 20210802, end: 20210804
  11. SERTRALINE [Concomitant]
     Active Substance: SERTRALINE HYDROCHLORIDE
  12. CLONAZEPAM. [Concomitant]
     Active Substance: CLONAZEPAM
  13. ATROPINE?DIPHENOXYLATE [Concomitant]
     Active Substance: ATROPINE\DIPHENOXYLATE
  14. QUETIAPINE. [Concomitant]
     Active Substance: QUETIAPINE
  15. ARMODAFINIL. [Suspect]
     Active Substance: ARMODAFINIL
     Indication: FATIGUE
     Dosage: ?          QUANTITY:1.5 TABLET(S);?
     Route: 048
     Dates: start: 20210802, end: 20210804
  16. BUPRENORPHINE. [Concomitant]
     Active Substance: BUPRENORPHINE
  17. CAFFIENE [Concomitant]

REACTIONS (6)
  - Aggression [None]
  - Delusion [None]
  - Nightmare [None]
  - Imprisonment [None]
  - Mania [None]
  - Hallucination [None]

NARRATIVE: CASE EVENT DATE: 20210804
